FAERS Safety Report 10234488 (Version 2)
Quarter: 2014Q2

REPORT INFORMATION
  Report Type: Spontaneous
  Country: US (occurrence: US)
  Receive Date: 20140613
  Receipt Date: 20140613
  Transmission Date: 20141212
  Serious: Yes (Hospitalization)
  Sender: FDA-Public Use
  Company Number: US-AMGEN-USASP2014032470

PATIENT
  Age: 46 Year
  Sex: Female

DRUGS (2)
  1. ENBREL [Suspect]
     Indication: RHEUMATOID ARTHRITIS
     Dosage: 25 MG, 2 TIMES/WK
     Route: 065
     Dates: start: 20001201
  2. METHOTREXATE [Concomitant]
     Dosage: 12.5 MG, QWK
     Dates: start: 1985

REACTIONS (3)
  - Joint arthroplasty [Recovered/Resolved]
  - Hip arthroplasty [Recovered/Resolved]
  - Nodule [Not Recovered/Not Resolved]
